APPROVED DRUG PRODUCT: HEPATAMINE 8%
Active Ingredient: AMINO ACIDS
Strength: 8% (8GM/100ML)
Dosage Form/Route: INJECTABLE;INJECTION
Application: N018676 | Product #001
Applicant: B BRAUN MEDICAL INC
Approved: Aug 3, 1982 | RLD: No | RS: No | Type: DISCN